FAERS Safety Report 15955650 (Version 2)
Quarter: 2019Q3

REPORT INFORMATION
  Report Type: Spontaneous
  Country: CH (occurrence: CH)
  Receive Date: 20190213
  Receipt Date: 20190911
  Transmission Date: 20191004
  Serious: Yes (Death)
  Sender: FDA-Public Use
  Company Number: CH-ASTRAZENECA-2019SE23246

PATIENT
  Sex: Female

DRUGS (6)
  1. EXFORGE HCT [Concomitant]
     Active Substance: AMLODIPINE BESYLATE\HYDROCHLOROTHIAZIDE\VALSARTAN
     Indication: HYPOTENSION
     Route: 048
  2. FASENRA [Suspect]
     Active Substance: BENRALIZUMAB
     Indication: ASTHMA
     Route: 058
  3. AVAMYS [Concomitant]
     Active Substance: FLUTICASONE FUROATE
     Indication: RHINITIS
     Dosage: 27.5 MCG
     Route: 045
  4. KCL [Concomitant]
     Active Substance: POTASSIUM CHLORIDE
     Dosage: 10MMOL
     Route: 048
  5. PANTOPRAZOL [Concomitant]
     Active Substance: PANTOPRAZOLE SODIUM
     Indication: GASTROOESOPHAGEAL REFLUX DISEASE
     Dosage: 40
     Route: 048
  6. SYMBICORT [Concomitant]
     Active Substance: BUDESONIDE\FORMOTEROL FUMARATE DIHYDRATE
     Indication: ASTHMA
     Dosage: 200/6
     Route: 055

REACTIONS (2)
  - Cardiac arrest [Fatal]
  - Asthma [Fatal]
